FAERS Safety Report 5745283-0 (Version None)
Quarter: 2008Q2

REPORT INFORMATION
  Report Type: 
  Country: None (occurrence: None)
  Receive Date: 20080521
  Receipt Date: 20080515
  Transmission Date: 20081010
  Serious: Yes (Hospitalization, Other)
  Sender: FDA-Public Use
  Company Number: BE-JNJFOC-20080503349

PATIENT
  Sex: Female

DRUGS (2)
  1. PERDOFEMINA [Suspect]
     Route: 048
  2. PERDOFEMINA [Suspect]
     Indication: ABDOMINAL PAIN
     Route: 048

REACTIONS (1)
  - RESPIRATORY DISORDER [None]
